FAERS Safety Report 5474159-1 (Version None)
Quarter: 2007Q3

REPORT INFORMATION
  Report Type: 
  Country: None (occurrence: None)
  Receive Date: 20070830
  Receipt Date: 20070119
  Transmission Date: 20080115
  Serious: Yes (Other)
  Sender: FDA-Public Use
  Company Number: 235245

PATIENT
  Age: 21 Year
  Sex: Male
  Weight: 65 kg

DRUGS (9)
  1. XOLAIR [Suspect]
     Indication: ASTHMA
     Dosage: 300 MG, Q4W, SUBCUTANEOUS
     Route: 058
     Dates: start: 20060301, end: 20070118
  2. ALBUTEROL (ALBUTEROL/ALBUTEROL SULFATE) [Concomitant]
  3. FORADIL [Concomitant]
  4. QVAR 40 [Concomitant]
  5. SINGULAIR [Concomitant]
  6. ZYRTEC [Concomitant]
  7. XANAX [Concomitant]
  8. TRILEPTAL [Concomitant]
  9. MEDICATION (UNK INGREDIENT) (GENERIC COMPONENT(S) NOT KNOWN) [Concomitant]

REACTIONS (1)
  - MALIGNANT MELANOMA [None]
